FAERS Safety Report 7683465-1 (Version None)
Quarter: 2011Q3

REPORT INFORMATION
  Report Type: 
  Country: None (occurrence: None)
  Receive Date: 20110815
  Receipt Date: 20110810
  Transmission Date: 20111222
  Serious: Yes (Congenital Anomaly, Other)
  Sender: FDA-Public Use
  Company Number: GXKR2011DE02528

PATIENT
  Sex: Male
  Weight: 2.64 kg

DRUGS (6)
  1. ALBUTEROL [Suspect]
     Dosage: MATERNAL DOSE: PROBABLY THROUGHOUT PREGNANCY ON DEMAND
     Route: 064
  2. BERODUAL [Suspect]
     Dosage: UNK UKN, UNK
     Route: 064
  3. JUNIK [Suspect]
     Dosage: MATERNAL DOSE: 200 UG, BID
     Route: 064
  4. FEMIBION [Concomitant]
     Dosage: MATERNAL DOSE: 0.4 MG/D
     Route: 064
  5. AMOXICILLIN [Concomitant]
     Dosage: MATERNAL DOSE: 1000 MG, BID
     Route: 064
  6. ALVESCO [Suspect]
     Dosage: MATERNAL DOSE: 160 UG, BID
     Route: 064

REACTIONS (3)
  - PULMONARY SEQUESTRATION [None]
  - POLYDACTYLY [None]
  - MATERNAL EXPOSURE DURING PREGNANCY [None]
